FAERS Safety Report 6688330-4 (Version None)
Quarter: 2010Q2

REPORT INFORMATION
  Report Type: 
  Country: None (occurrence: None)
  Receive Date: 20100420
  Receipt Date: 20100408
  Transmission Date: 20101027
  Serious: Yes (Hospitalization)
  Sender: FDA-Public Use
  Company Number: PHHY2010JP23305

PATIENT
  Age: 68 Year
  Sex: Female

DRUGS (3)
  1. DIOVAN [Suspect]
     Indication: HYPERTENSION
     Dosage: UNK
     Route: 048
  2. HERBESSER [Suspect]
     Dosage: UNK
     Route: 048
  3. AMLODIN [Suspect]
     Dosage: UNK
     Route: 048

REACTIONS (3)
  - CARDIO-RESPIRATORY ARREST [None]
  - OVERDOSE [None]
  - SYNCOPE [None]
